FAERS Safety Report 6484458-2 (Version None)
Quarter: 2009Q4

REPORT INFORMATION
  Report Type: 
  Country: None (occurrence: None)
  Receive Date: 20091209
  Receipt Date: 20091130
  Transmission Date: 20100525
  Serious: Yes (Other)
  Sender: FDA-Public Use
  Company Number: PHEH2009US14803

PATIENT
  Sex: Male

DRUGS (4)
  1. TEKTURNA [Suspect]
     Dosage: 150 MG , UNK
     Route: 065
     Dates: start: 20090101
  2. LISINOPRIL AND HYDROCHLOROTHIAZIDE [Concomitant]
     Dosage: 20/12.5 MG, UNK
     Route: 065
  3. POTASSIUM CHLORIDE [Concomitant]
     Dosage: UNK, UNK
     Route: 065
  4. PRAVASTATIN SODIUM [Concomitant]
     Dosage: UNK, UNK
     Route: 065

REACTIONS (2)
  - CATHETER PLACEMENT [None]
  - FLUID RETENTION [None]
